FAERS Safety Report 10068390 (Version 2)
Quarter: 2014Q2

REPORT INFORMATION
  Report Type: Spontaneous
  Country: BR (occurrence: BR)
  Receive Date: 20140409
  Receipt Date: 20140409
  Transmission Date: 20141212
  Serious: Yes (Hospitalization)
  Sender: FDA-Public Use
  Company Number: BR-ASTRAZENECA-2013SE69364

PATIENT
  Age: 47 Year
  Sex: Female
  Weight: 65 kg

DRUGS (1)
  1. ZOLADEX LA [Suspect]
     Indication: BENIGN OVARIAN TUMOUR
     Route: 058
     Dates: start: 20130904, end: 20130914

REACTIONS (8)
  - Uterine leiomyoma [Recovered/Resolved]
  - Pollakiuria [Recovered/Resolved]
  - Malaise [Recovered/Resolved]
  - Heart rate increased [Recovered/Resolved]
  - Asthenia [Recovered/Resolved]
  - Dizziness [Recovered/Resolved]
  - Anaemia [Recovered/Resolved]
  - Anxiety [Recovered/Resolved]
